FAERS Safety Report 12733479 (Version 5)
Quarter: 2017Q1

REPORT INFORMATION
  Report Type: Report from Study
  Country: IN (occurrence: IN)
  Receive Date: 20160912
  Receipt Date: 20170119
  Transmission Date: 20170428
  Serious: Yes (Hospitalization)
  Sender: FDA-Public Use
  Company Number: IN-B.I. PHARMACEUTICALS,INC./RIDGEFIELD-2016-BI-58065BI

PATIENT
  Age: 27 Year
  Sex: Female
  Weight: 43 kg

DRUGS (8)
  1. PRENTAL [Concomitant]
     Indication: RAYNAUD^S PHENOMENON
     Route: 048
  2. BLINDED BIBF 1120 [Suspect]
     Active Substance: NINTEDANIB
     Indication: INTERSTITIAL LUNG DISEASE
  3. NIFIDEPINE [Concomitant]
     Indication: RAYNAUD^S PHENOMENON
     Dosage: RETARD
     Route: 048
  4. MYCOPHENOLATE MOFETIL. [Concomitant]
     Active Substance: MYCOPHENOLATE MOFETIL
     Indication: SYSTEMIC SCLERODERMA
     Route: 048
  5. MYCOPHENOLATE MOFETIL. [Concomitant]
     Active Substance: MYCOPHENOLATE MOFETIL
     Indication: INTERSTITIAL LUNG DISEASE
  6. PENEGRA [Concomitant]
     Indication: RAYNAUD^S PHENOMENON
     Route: 048
  7. BLINDED BIBF 1120 [Suspect]
     Active Substance: NINTEDANIB
     Indication: SYSTEMIC SCLERODERMA
     Route: 048
     Dates: start: 20160802, end: 20160904
  8. ASPIRIN. [Concomitant]
     Active Substance: ASPIRIN
     Indication: RAYNAUD^S PHENOMENON
     Route: 048

REACTIONS (3)
  - Gangrene [Not Recovered/Not Resolved]
  - Skin discolouration [Not Recovered/Not Resolved]
  - Pain in extremity [Not Recovered/Not Resolved]

NARRATIVE: CASE EVENT DATE: 20160816
